FAERS Safety Report 7630468-9 (Version None)
Quarter: 2011Q3

REPORT INFORMATION
  Report Type: 
  Country: None (occurrence: None)
  Receive Date: 20110722
  Receipt Date: 20110720
  Transmission Date: 20111222
  Serious: Yes (Other)
  Sender: FDA-Public Use
  Company Number: DE-BAYER-2011-063595

PATIENT
  Age: 32 Year
  Sex: Female

DRUGS (1)
  1. CIPRO [Suspect]
     Indication: BRONCHITIS
     Dosage: 500 MG, QD
     Route: 048
     Dates: start: 20110129, end: 20110202

REACTIONS (4)
  - NEUTROPENIA [None]
  - HYPERSENSITIVITY [None]
  - RASH GENERALISED [None]
  - SYSTEMIC INFLAMMATORY RESPONSE SYNDROME [None]
